FAERS Safety Report 6662562-3 (Version None)
Quarter: 2010Q1

REPORT INFORMATION
  Report Type: 
  Country: None (occurrence: None)
  Receive Date: 20100329
  Receipt Date: 20100325
  Transmission Date: 20100710
  Serious: Yes (Other)
  Sender: FDA-Public Use
  Company Number: 2010SP006683

PATIENT
  Age: 59 Year
  Sex: Male

DRUGS (1)
  1. CELESTAMINE TAB [Suspect]
     Indication: DRUG USE FOR UNKNOWN INDICATION
     Dosage: 4 DF; PO
     Route: 048
     Dates: start: 20090420

REACTIONS (3)
  - CONDITION AGGRAVATED [None]
  - DIABETES MELLITUS [None]
  - RETINAL HAEMORRHAGE [None]
